FAERS Safety Report 9314269 (Version 1)
Quarter: 2013Q2

REPORT INFORMATION
  Report Type: Spontaneous
  Country: IT (occurrence: None)
  Receive Date: 20130522
  Receipt Date: 20130522
  Transmission Date: 20140414
  Serious: Yes (Other)
  Sender: FDA-Public Use
  Company Number: DSM-2013-00477

PATIENT
  Age: 68 Year
  Sex: Male

DRUGS (4)
  1. PLAUNAC [Suspect]
     Indication: HYPERTENSION
     Dosage: (20 MG, 1 IN 1 D)
     Route: 048
     Dates: start: 20091204
  2. VELMETIA [Suspect]
     Indication: DIABETES MELLITUS
     Dosage: (1 IN 1 D)
     Route: 048
     Dates: start: 20120410, end: 20130424
  3. CRESTOR [Suspect]
     Indication: HYPERCHOLESTEROLAEMIA
     Dosage: (10 MG, 1 IN  1 D)
     Route: 048
     Dates: start: 20080822
  4. CARDIRENE (ACETYLSALICYLATELYSINE) (ACETYLSALICYLATE LYSINE) [Concomitant]

REACTIONS (2)
  - Abdominal pain upper [None]
  - Lipase increased [None]
